FAERS Safety Report 23306089 (Version 3)
Quarter: 2024Q1

REPORT INFORMATION
  Report Type: Report from Study
  Country: CA (occurrence: CA)
  Receive Date: 20231218
  Receipt Date: 20240205
  Transmission Date: 20240410
  Serious: Yes (Hospitalization, Other)
  Sender: FDA-Public Use
  Company Number: CA-002147023-NVSC2022CA213451

PATIENT
  Sex: Female

DRUGS (1)
  1. ERELZI [Suspect]
     Active Substance: ETANERCEPT-SZZS
     Indication: Rheumatoid arthritis
     Dosage: 50 MG (PREFILLED PEN)
     Route: 058
     Dates: start: 20221117

REACTIONS (14)
  - Pyrexia [Unknown]
  - Staphylococcal infection [Unknown]
  - Swelling [Unknown]
  - Nephrolithiasis [Unknown]
  - Clostridium difficile infection [Unknown]
  - Infection [Unknown]
  - General physical health deterioration [Unknown]
  - Balance disorder [Unknown]
  - Dizziness [Unknown]
  - Constipation [Unknown]
  - Abdominal pain upper [Unknown]
  - Pruritus [Recovering/Resolving]
  - Weight decreased [Unknown]
  - COVID-19 [Unknown]
